FAERS Safety Report 17573769 (Version 13)
Quarter: 2021Q2

REPORT INFORMATION
  Report Type: Spontaneous
  Country: US (occurrence: US)
  Receive Date: 20200323
  Receipt Date: 20210415
  Transmission Date: 20210716
  Serious: Yes (Other)
  Sender: FDA-Public Use
  Company Number: US-PFIZER INC-2020121242

PATIENT
  Age: 45 Year
  Sex: Male
  Weight: 83.91 kg

DRUGS (1)
  1. BENEFIX [Suspect]
     Active Substance: COAGULATION FACTOR IX RECOMBINANT HUMAN\ISOPROPYL ALCOHOL
     Indication: HAEMORRHAGE
     Dosage: UNK (4,000 MODERATE BLEEDING 5,000 MORE SEVERE BLEEDING)

REACTIONS (13)
  - Headache [Not Recovered/Not Resolved]
  - Ear infection [Unknown]
  - Ear haemorrhage [Not Recovered/Not Resolved]
  - Oesophageal haemorrhage [Unknown]
  - Head injury [Unknown]
  - Haemorrhage [Recovering/Resolving]
  - Ear disorder [Unknown]
  - Ear swelling [Unknown]
  - Hypoacusis [Unknown]
  - Stress [Unknown]
  - Head discomfort [Not Recovered/Not Resolved]
  - Skull fracture [Unknown]
  - Pain [Not Recovered/Not Resolved]
